FAERS Safety Report 21539157 (Version 1)
Quarter: 2022Q4

REPORT INFORMATION
  Report Type: Spontaneous
  Country: CN (occurrence: CN)
  Receive Date: 20221102
  Receipt Date: 20221102
  Transmission Date: 20230113
  Serious: Yes (Other)
  Sender: FDA-Public Use
  Company Number: None

PATIENT
  Age: 83 Year
  Sex: Male
  Weight: 57 kg

DRUGS (6)
  1. CLOPIDOGREL [Suspect]
     Active Substance: CLOPIDOGREL BISULFATE
     Indication: Coronary artery disease
  2. CLOPIDOGREL [Suspect]
     Active Substance: CLOPIDOGREL BISULFATE
     Dosage: 75MG, QD
     Route: 048
     Dates: start: 20221010, end: 20221010
  3. IRBESARTAN [Concomitant]
     Active Substance: IRBESARTAN
     Indication: Coronary artery disease
     Dosage: 75MG, BID
     Route: 048
     Dates: start: 20221010, end: 20221010
  4. METOPROLOL SUCCINATE [Concomitant]
     Active Substance: METOPROLOL SUCCINATE
     Indication: Coronary artery disease
     Dosage: 47.5MG,QD
     Route: 048
     Dates: start: 20221010, end: 20221010
  5. ASPIRIN [Concomitant]
     Active Substance: ASPIRIN
     Indication: Coronary artery disease
     Dosage: 100MG,QD
     Route: 048
     Dates: start: 20221010, end: 20221010
  6. ATORVASTATIN CALCIUM [Concomitant]
     Active Substance: ATORVASTATIN CALCIUM
     Indication: Coronary artery disease
     Dosage: 20MG,QD
     Route: 048
     Dates: start: 20221010, end: 20221010

REACTIONS (4)
  - Chills [Recovered/Resolved]
  - Dyspnoea [Recovered/Resolved]
  - Cyanosis [Recovered/Resolved]
  - Bronchospasm [Recovered/Resolved]

NARRATIVE: CASE EVENT DATE: 20221010
